FAERS Safety Report 4436043-1 (Version None)
Quarter: 2004Q3

REPORT INFORMATION
  Report Type: 
  Country: None (occurrence: None)
  Receive Date: 20040726
  Receipt Date: 20040416
  Transmission Date: 20050211
  Serious: No
  Sender: FDA-Public Use
  Company Number: USA040465218

PATIENT
  Age: 75 Year
  Sex: Female

DRUGS (8)
  1. FORTEO [Suspect]
     Indication: OSTEOPOROSIS
     Dates: start: 20040412, end: 20040415
  2. LOTREL [Concomitant]
  3. LOPRESSOR [Concomitant]
  4. XANAX [Concomitant]
  5. RESTORIL [Concomitant]
  6. MIRAPEX (PRAMIPEKOLE DIHYDROCHLORIDE) [Concomitant]
  7. PRAVACHOL [Concomitant]
  8. DARVOCET-N 100 [Concomitant]

REACTIONS (2)
  - PRURITUS [None]
  - URTICARIA [None]
